FAERS Safety Report 6323426-8 (Version None)
Quarter: 2009Q3

REPORT INFORMATION
  Report Type: 
  Country: None (occurrence: None)
  Receive Date: 20090818
  Receipt Date: 20090421
  Transmission Date: 20100115
  Serious: Yes (Hospitalization)
  Sender: FDA-Public Use
  Company Number: MEDI-0008019

PATIENT
  Age: 6 Month
  Sex: Male
  Weight: 6.7 kg

DRUGS (7)
  1. SYNAGIS [Suspect]
     Indication: CARDIAC DISORDER
     Dosage: SEE IMAGE
     Route: 030
     Dates: start: 20081104, end: 20090127
  2. SYNAGIS [Suspect]
     Indication: CARDIAC DISORDER
     Dosage: SEE IMAGE
     Route: 030
     Dates: start: 20081104
  3. SYNAGIS [Suspect]
     Indication: CARDIAC DISORDER
     Dosage: SEE IMAGE
     Route: 030
     Dates: start: 20081202
  4. SYNAGIS [Suspect]
     Indication: CARDIAC DISORDER
     Dosage: SEE IMAGE
     Route: 030
     Dates: start: 20081230
  5. SYNAGIS [Suspect]
     Indication: CARDIAC DISORDER
     Dosage: SEE IMAGE
     Route: 030
     Dates: start: 20090224
  6. SYNAGIS [Suspect]
     Indication: CARDIAC DISORDER
     Dosage: SEE IMAGE
     Route: 030
     Dates: start: 20090324
  7. FLOVENT [Concomitant]

REACTIONS (1)
  - RESPIRATORY SYNCYTIAL VIRUS INFECTION [None]
